FAERS Safety Report 18640777 (Version 2)
Quarter: 2020Q4

REPORT INFORMATION
  Report Type: Report from Study
  Country: FR (occurrence: FR)
  Receive Date: 20201221
  Receipt Date: 20201225
  Transmission Date: 20210114
  Serious: Yes (Hospitalization)
  Sender: FDA-Public Use
  Company Number: FR-ROCHE-2731223

PATIENT
  Age: 62 Year
  Sex: Female

DRUGS (8)
  1. DOCETAXEL. [Suspect]
     Active Substance: DOCETAXEL
     Indication: NON-SMALL CELL LUNG CANCER
     Dosage: DATE OF LAST ADMINISTRATION OF STUDY TREATMENT WAS 15/OCT/2020.
     Route: 065
     Dates: start: 20200814
  2. CORTANCYL [Concomitant]
     Active Substance: PREDNISONE
     Dosage: ON MORNING
     Dates: start: 20200212
  3. CETIRIZINE [Concomitant]
     Active Substance: CETIRIZINE HYDROCHLORIDE
     Dosage: IF NEEDED
  4. QUESTRAN [Concomitant]
     Active Substance: CHOLESTYRAMINE
     Dosage: 5SACHET/DAY
  5. ZOPHREN [Concomitant]
     Active Substance: ONDANSETRON
     Indication: NAUSEA
     Dates: start: 20201202
  6. HYDROXYZINE [Concomitant]
     Active Substance: HYDROXYZINE HYDROCHLORIDE
  7. TRASTUZUMAB. [Suspect]
     Active Substance: TRASTUZUMAB
     Indication: NON-SMALL CELL LUNG CANCER
     Dosage: DATE OF LAST ADMINISTRATION OF STUDY TREATMENT WAS 15/OCT/2020.
     Route: 065
     Dates: start: 20200814
  8. PERTUZUMAB. [Suspect]
     Active Substance: PERTUZUMAB
     Indication: NON-SMALL CELL LUNG CANCER
     Dosage: DATE OF LAST ADMINISTRATION OF STUDY TREATMENT WAS 15/OCT/2020.
     Route: 065
     Dates: start: 20200814

REACTIONS (3)
  - Dyspnoea [Not Recovered/Not Resolved]
  - Disease progression [Recovered/Resolved]
  - General physical health deterioration [Recovered/Resolved]

NARRATIVE: CASE EVENT DATE: 20201125
